FAERS Safety Report 19949338 (Version 1)
Quarter: 2021Q4

REPORT INFORMATION
  Report Type: Spontaneous
  Country: US (occurrence: US)
  Receive Date: 20211011
  Receipt Date: 20211011
  Transmission Date: 20220303
  Serious: No
  Sender: FDA-Public Use
  Company Number: None

PATIENT
  Age: 77 Year
  Sex: Male

DRUGS (1)
  1. ABIRATERONE [Suspect]
     Active Substance: ABIRATERONE
     Route: 048
     Dates: start: 202104

REACTIONS (3)
  - Palmar-plantar erythrodysaesthesia syndrome [None]
  - Fall [None]
  - Spinal fracture [None]

NARRATIVE: CASE EVENT DATE: 20210707
